FAERS Safety Report 10900671 (Version 1)
Quarter: 2015Q1

REPORT INFORMATION
  Report Type: Spontaneous
  Country: IN (occurrence: None)
  Receive Date: 20150303
  Receipt Date: 20150303
  Transmission Date: 20150721
  Serious: Yes (Other)
  Sender: FDA-Public Use
  Company Number: FK201500976

PATIENT
  Age: 57 Year
  Sex: Female

DRUGS (3)
  1. CYCLOPHOSPHAMIDE (CYCLOPHOSPHAMIDE) [Concomitant]
     Active Substance: CYCLOPHOSPHAMIDE
  2. MESNA (MANUFACTURER UNKNOWN) (MESNA) (MESNA) [Suspect]
     Active Substance: MESNA
     Indication: MULTIPLE SCLEROSIS
     Dosage: 400 MG, 1 IN 6 WK
     Dates: start: 201202
  3. PREDNISOLONE (PREDNISOLONE) [Concomitant]
     Active Substance: PREDNISOLONE

REACTIONS (1)
  - Drug eruption [None]
